FAERS Safety Report 23780316 (Version 4)
Quarter: 2024Q2

REPORT INFORMATION
  Report Type: Report from Study
  Country: FR (occurrence: FR)
  Receive Date: 20240424
  Receipt Date: 20240606
  Transmission Date: 20240716
  Serious: Yes (Death, Hospitalization, Other)
  Sender: FDA-Public Use
  Company Number: FR-BIOGEN-2024BI01260554

PATIENT
  Age: 38 Year
  Sex: Female
  Weight: 50 kg

DRUGS (9)
  1. OMAVELOXOLONE [Suspect]
     Active Substance: OMAVELOXOLONE
     Indication: Friedreich^s ataxia
     Route: 050
     Dates: start: 20240406, end: 20240409
  2. METFORMIN HYDROCHLORIDE [Suspect]
     Active Substance: METFORMIN HYDROCHLORIDE
     Indication: Product used for unknown indication
     Route: 050
     Dates: start: 20140101
  3. METFORMIN HYDROCHLORIDE [Suspect]
     Active Substance: METFORMIN HYDROCHLORIDE
     Dosage: 1-0-1
     Route: 050
  4. ELIQUIS [Concomitant]
     Active Substance: APIXABAN
     Indication: Product used for unknown indication
     Dosage: 1-0-1
     Route: 050
     Dates: start: 20200101
  5. BISOPROLOL CRP [Concomitant]
     Indication: Product used for unknown indication
     Route: 050
     Dates: start: 20200101
  6. BISOPROLOL CRP [Concomitant]
     Dosage: 1-0-1
     Route: 050
  7. JANUVIA [Concomitant]
     Active Substance: SITAGLIPTIN PHOSPHATE
     Indication: Product used for unknown indication
     Dosage: AT MIDDAY
     Route: 050
     Dates: start: 20210101
  8. MIDAZOLAM [Concomitant]
     Active Substance: MIDAZOLAM
     Indication: Sedative therapy
     Route: 050
  9. SUFENTANIL [Concomitant]
     Active Substance: SUFENTANIL
     Indication: Sedative therapy
     Route: 050

REACTIONS (10)
  - Shock [Fatal]
  - Multiple organ dysfunction syndrome [Fatal]
  - Lactic acidosis [Fatal]
  - Cardiogenic shock [Fatal]
  - Hypovolaemia [Unknown]
  - Dehydration [Not Recovered/Not Resolved]
  - Acute kidney injury [Unknown]
  - Vomiting [Not Recovered/Not Resolved]
  - Diarrhoea [Not Recovered/Not Resolved]
  - Nausea [Unknown]

NARRATIVE: CASE EVENT DATE: 20240401
